FAERS Safety Report 17590230 (Version 1)
Quarter: 2020Q1

REPORT INFORMATION
  Report Type: Spontaneous
  Country: US (occurrence: US)
  Receive Date: 20200326
  Receipt Date: 20200326
  Transmission Date: 20200409
  Serious: No
  Sender: FDA-Public Use
  Company Number: None

PATIENT
  Age: 63 Year
  Sex: Female
  Weight: 101.25 kg

DRUGS (19)
  1. LOSARTAN. [Concomitant]
     Active Substance: LOSARTAN
  2. OMEPRAZOLE. [Suspect]
     Active Substance: OMEPRAZOLE
     Indication: BARRETT^S OESOPHAGUS
     Dosage: ?          QUANTITY:1 TABLET(S);?
     Route: 048
  3. GLIMIPRIDE [Concomitant]
     Active Substance: GLIMEPIRIDE
  4. TRIAMTERENE AND HYDROCHLOROTHIAZIDE [Concomitant]
     Active Substance: HYDROCHLOROTHIAZIDE\TRIAMTERENE
  5. PRAVASTATIN. [Concomitant]
     Active Substance: PRAVASTATIN
  6. VITAMIN B COMPLEX [Concomitant]
     Active Substance: CYANOCOBALAMIN\DEXPANTHENOL\NIACINAMIDE\PYRIDOXINE HYDROCHLORIDE\RIBOFLAVIN 5^-PHOSPHATE SODIUM\THIAMINE HYDROCHLORIDE\VITAMIN B COMPLEX
  7. VERAPAMIL [Concomitant]
     Active Substance: VERAPAMIL HYDROCHLORIDE
  8. BENADRYL [Concomitant]
     Active Substance: DIPHENHYDRAMINE HYDROCHLORIDE
  9. OMEPRAZOLE. [Suspect]
     Active Substance: OMEPRAZOLE
     Indication: GASTROOESOPHAGEAL REFLUX DISEASE
     Dosage: ?          QUANTITY:1 TABLET(S);?
     Route: 048
  10. LASIX [Concomitant]
     Active Substance: FUROSEMIDE
  11. MULTIVITAMIN AND MINERAL [Concomitant]
  12. COENZYME Q10 [Concomitant]
     Active Substance: UBIDECARENONE
  13. METFORMIN [Concomitant]
     Active Substance: METFORMIN HYDROCHLORIDE
  14. FENOFIBRATE. [Concomitant]
     Active Substance: FENOFIBRATE
  15. TYLENOL [Concomitant]
     Active Substance: ACETAMINOPHEN
  16. FERROUS SULFATE. [Concomitant]
     Active Substance: FERROUS SULFATE
  17. HYALURONIC ACID [Concomitant]
     Active Substance: HYALURONIC ACID
  18. JANUVIA [Concomitant]
     Active Substance: SITAGLIPTIN PHOSPHATE
  19. QUETIAPINE. [Concomitant]
     Active Substance: QUETIAPINE

REACTIONS (3)
  - Product use complaint [None]
  - Dysphagia [None]
  - Product intolerance [None]

NARRATIVE: CASE EVENT DATE: 20200325
